FAERS Safety Report 5510048-1 (Version None)
Quarter: 2007Q4

REPORT INFORMATION
  Report Type: 
  Country: None (occurrence: None)
  Receive Date: 20071108
  Receipt Date: 20070712
  Transmission Date: 20080405
  Serious: No
  Sender: FDA-Public Use
  Company Number: US-ABBOTT-07P-163-0374550-00

PATIENT
  Age: 20 Year
  Sex: Female

DRUGS (5)
  1. CLARITHROMYCIN [Suspect]
     Indication: DRUG USE FOR UNKNOWN INDICATION
     Route: 048
     Dates: start: 20070605
  2. BENPROPERINE PHOSPHATE [Suspect]
     Indication: NASOPHARYNGITIS
     Route: 048
     Dates: start: 20070605
  3. TRANEXAMIC ACID [Suspect]
     Indication: DRUG USE FOR UNKNOWN INDICATION
     Dates: start: 20070605
  4. REBAMIPIDE [Suspect]
     Indication: DRUG USE FOR UNKNOWN INDICATION
     Route: 048
     Dates: start: 20070605
  5. UNSPECIFIED DRUG [Suspect]
     Indication: NASOPHARYNGITIS
     Route: 048
     Dates: start: 20070605

REACTIONS (1)
  - HEARING IMPAIRED [None]
